FAERS Safety Report 13715659 (Version 1)
Quarter: 2017Q3

REPORT INFORMATION
  Report Type: Spontaneous
  Country: AT (occurrence: AT)
  Receive Date: 20170705
  Receipt Date: 20170705
  Transmission Date: 20171127
  Serious: Yes (Death, Hospitalization, Other)
  Sender: FDA-Public Use
  Company Number: AT-GLENMARK PHARMACEUTICALS-2017GMK028058

PATIENT
  Age: 46 Year
  Sex: Male

DRUGS (12)
  1. PREDNISOLONE. [Suspect]
     Active Substance: PREDNISOLONE
     Indication: ACUTE RESPIRATORY DISTRESS SYNDROME
  2. LINEZOLID. [Suspect]
     Active Substance: LINEZOLID
     Indication: ACUTE RESPIRATORY DISTRESS SYNDROME
  3. MEROPENEM. [Suspect]
     Active Substance: MEROPENEM
     Indication: SYSTEMIC INFLAMMATORY RESPONSE SYNDROME
     Dosage: UNK, ON DAY -6 TO 0
     Route: 065
  4. CEFEPIME [Suspect]
     Active Substance: CEFEPIME HYDROCHLORIDE
     Indication: ACUTE RESPIRATORY DISTRESS SYNDROME
  5. PREDNISOLONE. [Suspect]
     Active Substance: PREDNISOLONE
     Indication: SYSTEMIC INFLAMMATORY RESPONSE SYNDROME
     Dosage: 50 MG, QD
     Route: 065
  6. AMOXICILLIN CLAVULANIC ACID [Suspect]
     Active Substance: AMOXICILLIN\CLAVULANIC ACID
     Indication: SYSTEMIC INFLAMMATORY RESPONSE SYNDROME
     Dosage: UNK, ON DAY -30 TO -16
     Route: 065
  7. CEFEPIME [Suspect]
     Active Substance: CEFEPIME HYDROCHLORIDE
     Indication: SYSTEMIC INFLAMMATORY RESPONSE SYNDROME
     Dosage: UNK, ON DAY -15 TO -7
     Route: 065
  8. AMOXICILLIN CLAVULANIC ACID [Suspect]
     Active Substance: AMOXICILLIN\CLAVULANIC ACID
     Indication: ACUTE RESPIRATORY DISTRESS SYNDROME
  9. MEROPENEM. [Suspect]
     Active Substance: MEROPENEM
     Indication: ACUTE RESPIRATORY DISTRESS SYNDROME
  10. LEVOFLOXACIN. [Suspect]
     Active Substance: LEVOFLOXACIN
     Indication: ACUTE RESPIRATORY DISTRESS SYNDROME
  11. LINEZOLID. [Suspect]
     Active Substance: LINEZOLID
     Indication: SYSTEMIC INFLAMMATORY RESPONSE SYNDROME
     Dosage: UNK, ON DAY -6 TO 0
     Route: 065
  12. LEVOFLOXACIN. [Suspect]
     Active Substance: LEVOFLOXACIN
     Indication: SYSTEMIC INFLAMMATORY RESPONSE SYNDROME
     Dosage: UNK, ON DAY -14 TO 0
     Route: 065

REACTIONS (2)
  - Multiple organ dysfunction syndrome [Fatal]
  - Enterocolitis [Fatal]
